FAERS Safety Report 17768078 (Version 1)
Quarter: 2020Q2

REPORT INFORMATION
  Report Type: Spontaneous
  Country: US (occurrence: US)
  Receive Date: 20200511
  Receipt Date: 20200511
  Transmission Date: 20200714
  Serious: Yes (Other)
  Sender: FDA-Public Use
  Company Number: NVSC2020US125504

PATIENT
  Age: 2 Month
  Sex: Female
  Weight: 4.1 kg

DRUGS (1)
  1. TRAMETINIB [Suspect]
     Active Substance: TRAMETINIB
     Indication: PRODUCT USED FOR UNKNOWN INDICATION
     Dosage: 0.012 MG/KG (EVERY OTHER DAY)
     Route: 065
     Dates: start: 20200315, end: 20200404

REACTIONS (5)
  - Ventricular tachycardia [Unknown]
  - Ill-defined disorder [Unknown]
  - Pyrexia [Recovered/Resolved]
  - Lactic acidosis [Recovered/Resolved]
  - Necrotising enterocolitis neonatal [Recovered/Resolved]

NARRATIVE: CASE EVENT DATE: 20200404
